FAERS Safety Report 5601285-6 (Version None)
Quarter: 2008Q1

REPORT INFORMATION
  Report Type: 
  Country: None (occurrence: None)
  Receive Date: 20080124
  Receipt Date: 20080116
  Transmission Date: 20080703
  Serious: Yes (Other)
  Sender: FDA-Public Use
  Company Number: B0489313A

PATIENT
  Sex: Female

DRUGS (4)
  1. SEROXAT [Suspect]
     Indication: DEPRESSION
     Route: 048
     Dates: start: 20010101, end: 20070801
  2. TRAMADOL HCL [Suspect]
     Indication: PAIN
     Route: 065
     Dates: start: 20070901, end: 20070901
  3. NAPROXIN [Concomitant]
     Indication: RHEUMATOID ARTHRITIS
     Route: 065
  4. HYDROXYCHLOROQUINE [Concomitant]
     Indication: RHEUMATOID ARTHRITIS
     Route: 065

REACTIONS (11)
  - BACK PAIN [None]
  - DRUG WITHDRAWAL SYNDROME [None]
  - INSOMNIA [None]
  - LIBIDO DECREASED [None]
  - MUSCLE SPASMS [None]
  - MUSCULOSKELETAL STIFFNESS [None]
  - MYALGIA [None]
  - NERVOUSNESS [None]
  - THYROID FUNCTION TEST ABNORMAL [None]
  - TRANSAMINASES INCREASED [None]
  - VERTIGO [None]
